FAERS Safety Report 18864282 (Version 1)
Quarter: 2021Q1

REPORT INFORMATION
  Report Type: Spontaneous
  Country: US (occurrence: US)
  Receive Date: 20210209
  Receipt Date: 20210209
  Transmission Date: 20210420
  Serious: No
  Sender: FDA-Public Use
  Company Number: US-SA-2021SA036035

PATIENT
  Sex: Female
  Weight: 59.41 kg

DRUGS (16)
  1. PROTOPIC [Concomitant]
     Active Substance: TACROLIMUS
  2. HIZENTRA [Concomitant]
     Active Substance: HUMAN IMMUNOGLOBULIN G
  3. DOXYCYCLINE HYCLATE. [Concomitant]
     Active Substance: DOXYCYCLINE HYCLATE
  4. LIDOCAINE. [Concomitant]
     Active Substance: LIDOCAINE
  5. EPINEPHRINE. [Concomitant]
     Active Substance: EPINEPHRINE
  6. NEXIUM I.V. [Concomitant]
     Active Substance: ESOMEPRAZOLE SODIUM
  7. DUPIXENT [Suspect]
     Active Substance: DUPILUMAB
     Indication: IMMUNODEFICIENCY COMMON VARIABLE
     Dosage: 200 MG, QOW
     Route: 058
  8. DIPHENHYDRAMINE. [Concomitant]
     Active Substance: DIPHENHYDRAMINE
  9. BYETTA [Concomitant]
     Active Substance: EXENATIDE
  10. LEVOTHYROXINE SODIUM. [Concomitant]
     Active Substance: LEVOTHYROXINE SODIUM
  11. ESTRADIOL / NORETHINDRONE ACETATE [Concomitant]
     Active Substance: ESTRADIOL\NORETHINDRONE ACETATE
  12. HYDROCHLOROTHIAZIDE. [Concomitant]
     Active Substance: HYDROCHLOROTHIAZIDE
  13. ACETAMINOPHEN. [Concomitant]
     Active Substance: ACETAMINOPHEN
  14. CLOBETASOL 0.05% [Concomitant]
     Active Substance: CLOBETASOL
  15. CELLCEPT [Concomitant]
     Active Substance: MYCOPHENOLATE MOFETIL\MYCOPHENOLATE MOFETIL HYDROCHLORIDE
  16. RITUXAN [Concomitant]
     Active Substance: RITUXIMAB

REACTIONS (2)
  - Product use in unapproved indication [Unknown]
  - Arthropathy [Unknown]
